FAERS Safety Report 9672332 (Version 2)
Quarter: 2014Q2

REPORT INFORMATION
  Report Type: Spontaneous
  Country: US (occurrence: US)
  Receive Date: 20131106
  Receipt Date: 20140401
  Transmission Date: 20141212
  Serious: Yes (Other)
  Sender: FDA-Public Use
  Company Number: US-ELI_LILLY_AND_COMPANY-US201310008862

PATIENT
  Age: 66 Year
  Sex: Female

DRUGS (4)
  1. HUMULIN NPH [Suspect]
     Indication: DIABETES MELLITUS
     Dosage: UNK, PRN
     Route: 065
  2. HUMULIN NPH [Suspect]
     Dosage: UNK, PRN
     Route: 065
  3. HUMULIN NPH [Suspect]
     Dosage: UNK, PRN
     Route: 065
  4. INSULIN HUMAN [Suspect]
     Indication: DIABETES MELLITUS
     Dosage: UNK
     Route: 065
     Dates: start: 2013

REACTIONS (9)
  - Non-Hodgkin^s lymphoma [Not Recovered/Not Resolved]
  - Blood glucose increased [Unknown]
  - Abdominal discomfort [Unknown]
  - Abdominal distension [Unknown]
  - Blood glucose increased [Unknown]
  - Blood glucose decreased [Unknown]
  - Drug ineffective [Unknown]
  - Incorrect product storage [Recovered/Resolved]
  - Medication error [Recovered/Resolved]
